FAERS Safety Report 13096367 (Version 1)
Quarter: 2017Q1

REPORT INFORMATION
  Report Type: Spontaneous
  Country: None (occurrence: US)
  Receive Date: 20170106
  Receipt Date: 20170106
  Transmission Date: 20170428
  Serious: Yes (Death, Hospitalization)
  Sender: FDA-Public Use
  Company Number: None

PATIENT
  Age: 75 Year
  Sex: Male
  Weight: 77.9 kg

DRUGS (2)
  1. CASODEX [Suspect]
     Active Substance: BICALUTAMIDE
     Dates: end: 20160628
  2. LEUPROLIDE ACETATE. [Suspect]
     Active Substance: LEUPROLIDE ACETATE
     Dates: end: 20160628

REACTIONS (1)
  - Cerebrovascular accident [None]

NARRATIVE: CASE EVENT DATE: 20161128
